FAERS Safety Report 13843884 (Version 2)
Quarter: 2017Q4

REPORT INFORMATION
  Report Type: Spontaneous
  Country: IT (occurrence: IT)
  Receive Date: 20170808
  Receipt Date: 20171031
  Transmission Date: 20180320
  Serious: Yes (Hospitalization, Other)
  Sender: FDA-Public Use
  Company Number: IT-SA-2017SA143750

PATIENT
  Age: 59 Year
  Sex: Male

DRUGS (12)
  1. FOSFOMYCIN SALT NOT SPECIFIED [Suspect]
     Active Substance: FOSFOMYCIN
     Indication: PROSTATITIS
     Route: 065
  2. OMEPRAZOLE. [Concomitant]
     Active Substance: OMEPRAZOLE
  3. BARNIDIPINE [Concomitant]
     Active Substance: BARNIDIPINE
  4. RIFAMPICIN [Suspect]
     Active Substance: RIFAMPIN
     Indication: PROSTATITIS
     Route: 065
  5. KETOPROFEN. [Suspect]
     Active Substance: KETOPROFEN
     Indication: PROSTATITIS
     Route: 065
  6. TELMISARTAN. [Concomitant]
     Active Substance: TELMISARTAN
  7. ALOGLIPTIN/PIOGLITAZONE [Concomitant]
  8. METFORMIN [Suspect]
     Active Substance: METFORMIN HYDROCHLORIDE
     Indication: DIABETES MELLITUS
     Route: 065
  9. CIPROFLOXACIN. [Suspect]
     Active Substance: CIPROFLOXACIN
     Indication: PROSTATITIS
     Route: 065
  10. ACETYLSALICYLIC ACID [Suspect]
     Active Substance: ASPIRIN
     Indication: PROSTATITIS
     Route: 065
  11. SIMVASTATIN/EZETIMIBE [Concomitant]
  12. ALFUZOSIN [Concomitant]
     Active Substance: ALFUZOSIN

REACTIONS (6)
  - Blood pH decreased [Recovered/Resolved]
  - Acute kidney injury [Recovered/Resolved]
  - Drug level increased [Unknown]
  - Lactic acidosis [Recovered/Resolved]
  - Altered state of consciousness [Recovered/Resolved]
  - Dyspnoea [Recovered/Resolved]
